FAERS Safety Report 25464077 (Version 1)
Quarter: 2025Q2

REPORT INFORMATION
  Report Type: Spontaneous
  Country: DE (occurrence: DE)
  Receive Date: 20250621
  Receipt Date: 20250621
  Transmission Date: 20250716
  Serious: Yes (Life-Threatening, Hospitalization, Other)
  Sender: ACCORD
  Company Number: None

PATIENT
  Sex: Male
  Weight: 88 kg

DRUGS (4)
  1. METHOTREXATE [Suspect]
     Active Substance: METHOTREXATE
     Indication: Psoriatic arthropathy
     Dates: end: 202410
  2. PREDNISOLONE [Concomitant]
     Active Substance: PREDNISOLONE
     Dosage: STRENGTH: 5 MG, 1-0-0-0
  3. CHOLECALCIFEROL [Concomitant]
     Active Substance: CHOLECALCIFEROL
  4. OXYCODONE [Concomitant]
     Active Substance: OXYCODONE

REACTIONS (7)
  - Hepatic cirrhosis [Recovered/Resolved with Sequelae]
  - Spontaneous bacterial peritonitis [Recovered/Resolved with Sequelae]
  - Hepatitis E [Recovered/Resolved with Sequelae]
  - Acute kidney injury [Unknown]
  - Hyperglycaemia [Unknown]
  - Drug-induced liver injury [Unknown]
  - Cholangitis [Unknown]

NARRATIVE: CASE EVENT DATE: 20240101
